FAERS Safety Report 25986267 (Version 1)
Quarter: 2025Q4

REPORT INFORMATION
  Report Type: Spontaneous
  Country: CA (occurrence: CA)
  Receive Date: 20251101
  Receipt Date: 20251101
  Transmission Date: 20260118
  Serious: Yes (Other)
  Sender: CELLTRION
  Company Number: CA-CELLTRION INC.-2025CA039482

PATIENT

DRUGS (4)
  1. STEQEYMA [Suspect]
     Active Substance: USTEKINUMAB-STBA
     Indication: Crohn^s disease
     Dosage: MAINTENANCE: 90 MG EVERY 8 WEEKS
     Route: 058
  2. STEQEYMA [Suspect]
     Active Substance: USTEKINUMAB-STBA
     Indication: Crohn^s disease
     Dosage: LOADING: 260 MG WEEK 0, WEEK 8
     Route: 042
     Dates: start: 20250703
  3. ENTYVIO [Concomitant]
     Active Substance: VEDOLIZUMAB
     Indication: Product used for unknown indication
     Route: 065
  4. PREDNISOLONE [Concomitant]
     Active Substance: PREDNISOLONE
     Indication: Product used for unknown indication
     Dosage: ORAL
     Route: 065

REACTIONS (5)
  - Crohn^s disease [Unknown]
  - Nausea [Unknown]
  - Decreased appetite [Unknown]
  - Incorrect dose administered [Unknown]
  - Liquid product physical issue [Unknown]
